FAERS Safety Report 16168902 (Version 1)
Quarter: 2019Q2

REPORT INFORMATION
  Report Type: Spontaneous
  Country: DK (occurrence: DK)
  Receive Date: 20190408
  Receipt Date: 20190408
  Transmission Date: 20190711
  Serious: Yes (Other)
  Sender: FDA-Public Use
  Company Number: DK-BAYER-2019-060804

PATIENT
  Age: 28 Year
  Sex: Female
  Weight: 53 kg

DRUGS (1)
  1. JAYDESS [Suspect]
     Active Substance: LEVONORGESTREL
     Indication: CONTRACEPTION
     Dosage: 14 MCG/24HR, CONT
     Route: 015
     Dates: start: 20160112, end: 20190326

REACTIONS (6)
  - Drug ineffective [None]
  - Ruptured ectopic pregnancy [Recovered/Resolved]
  - Intra-abdominal haemorrhage [None]
  - Device use issue [None]
  - Ectopic pregnancy with contraceptive device [Recovered/Resolved]
  - Device issue [None]

NARRATIVE: CASE EVENT DATE: 2019
